FAERS Safety Report 14706868 (Version 1)
Quarter: 2018Q2

REPORT INFORMATION
  Report Type: Spontaneous
  Country: US (occurrence: US)
  Receive Date: 20180403
  Receipt Date: 20180403
  Transmission Date: 20180711
  Serious: Yes (Other)
  Sender: FDA-Public Use
  Company Number: US-CIPLA LTD.-2018US13781

PATIENT

DRUGS (5)
  1. PEMETREXED. [Suspect]
     Active Substance: PEMETREXED
     Indication: LUNG ADENOCARCINOMA
     Dosage: UNK, 6 CYCLES FOLLOWED BY FOUR CYCLES OF MAINTENANCE
     Route: 065
  2. DOCETAXEL. [Suspect]
     Active Substance: DOCETAXEL
     Indication: LUNG ADENOCARCINOMA
     Dosage: UNK, ONE CYCLE
     Route: 065
  3. NIVOLUMAB [Suspect]
     Active Substance: NIVOLUMAB
     Indication: LUNG ADENOCARCINOMA
     Dosage: UNK, SIX CYCLES
     Route: 065
  4. CARBOPLATIN. [Suspect]
     Active Substance: CARBOPLATIN
     Indication: LUNG ADENOCARCINOMA
     Dosage: UNK, 6 CYCLES FOLLOWED BY FOUR CYCLES OF MAINTENANCE
     Route: 065
  5. BEVACIZUMAB. [Suspect]
     Active Substance: BEVACIZUMAB
     Indication: LUNG ADENOCARCINOMA
     Dosage: UNK, 6 CYCLES FOLLOWED BY FOUR CYCLES OF MAINTENANCE
     Route: 065

REACTIONS (3)
  - Respiratory failure [Unknown]
  - Malignant neoplasm progression [Unknown]
  - Pneumonia [Unknown]
